FAERS Safety Report 7167325-0 (Version None)
Quarter: 2010Q4

REPORT INFORMATION
  Report Type: 
  Country: None (occurrence: None)
  Receive Date: 20101216
  Receipt Date: 20101209
  Transmission Date: 20110411
  Serious: Yes (Hospitalization)
  Sender: FDA-Public Use
  Company Number: PHHO2010DE14698

PATIENT
  Sex: Female
  Weight: 54 kg

DRUGS (17)
  1. AMN107 AMN+CAP [Suspect]
     Indication: ACUTE MYELOID LEUKAEMIA
     Dosage: 400 MG, UNK
     Route: 048
     Dates: start: 20100713, end: 20100922
  2. AFINITOR [Suspect]
     Indication: ACUTE MYELOID LEUKAEMIA
     Dosage: 2.5 MG, UNK
     Dates: start: 20100719, end: 20100922
  3. PANTOPRAZOLE [Concomitant]
  4. GLUCOBAY [Concomitant]
  5. DELIX [Concomitant]
  6. MOXONIDINE [Concomitant]
  7. DECORTIN-H [Concomitant]
  8. POTASSIUM CHLORIDE [Concomitant]
  9. CONCOR [Concomitant]
  10. SEROQUEL [Concomitant]
  11. HCT [Concomitant]
  12. METOCLOPRAMIDE HYDROCHLORIDE [Concomitant]
  13. NORVASC [Concomitant]
  14. VALTREX [Concomitant]
  15. CIPRO [Concomitant]
  16. LANTUS [Concomitant]
  17. VITAMIN D3 [Concomitant]

REACTIONS (4)
  - BACK PAIN [None]
  - LUMBAR VERTEBRAL FRACTURE [None]
  - OSTEOPOROSIS [None]
  - SPINAL FRACTURE [None]
